FAERS Safety Report 11513645 (Version 1)
Quarter: 2015Q3

REPORT INFORMATION
  Report Type: Spontaneous
  Country: US (occurrence: US)
  Receive Date: 20150903
  Receipt Date: 20150903
  Transmission Date: 20151125
  Serious: No
  Sender: FDA-Public Use
  Company Number: US-ELI_LILLY_AND_COMPANY-US201211005358

PATIENT
  Age: 41 Year
  Sex: Female

DRUGS (4)
  1. THORAZINE [Concomitant]
     Active Substance: CHLORPROMAZINE
  2. INTERFERON [Concomitant]
     Active Substance: INTERFERON
  3. ABILIFY [Concomitant]
     Active Substance: ARIPIPRAZOLE
  4. CYMBALTA [Suspect]
     Active Substance: DULOXETINE HYDROCHLORIDE
     Indication: DEPRESSION
     Dosage: 60 MG, UNK
     Dates: end: 20121113

REACTIONS (1)
  - Oral herpes [Unknown]

NARRATIVE: CASE EVENT DATE: 201211
